FAERS Safety Report 5632947-2 (Version None)
Quarter: 2008Q1

REPORT INFORMATION
  Report Type: 
  Country: None (occurrence: None)
  Receive Date: 20080221
  Receipt Date: 20080213
  Transmission Date: 20080703
  Serious: Yes (Other)
  Sender: FDA-Public Use
  Company Number: PHHY2008JP01450

PATIENT
  Sex: Female

DRUGS (2)
  1. AREDIA [Suspect]
     Indication: METASTASES TO BONE
     Dates: start: 20000101
  2. VINORELBINE [Concomitant]
     Indication: METASTASES TO BONE
     Dates: start: 20000101

REACTIONS (4)
  - BONE DISORDER [None]
  - GINGIVAL ABSCESS [None]
  - GINGIVAL SWELLING [None]
  - OSTEOMYELITIS [None]
